FAERS Safety Report 18576098 (Version 1)
Quarter: 2020Q4

REPORT INFORMATION
  Report Type: Spontaneous
  Country: US (occurrence: US)
  Receive Date: 20201203
  Receipt Date: 20201203
  Transmission Date: 20210114
  Serious: Yes (Other)
  Sender: FDA-Public Use
  Company Number: US-PFIZER INC-2020477316

PATIENT
  Sex: Male

DRUGS (2)
  1. VIAGRA [Suspect]
     Active Substance: SILDENAFIL CITRATE
     Dosage: 100 MG
  2. MOTRIN [Suspect]
     Active Substance: IBUPROFEN
     Dosage: 1000 MG

REACTIONS (2)
  - Urinary retention [Unknown]
  - Erection increased [Unknown]
